FAERS Safety Report 17851838 (Version 6)
Quarter: 2021Q2

REPORT INFORMATION
  Report Type: Spontaneous
  Country: US (occurrence: US)
  Receive Date: 20200602
  Receipt Date: 20210402
  Transmission Date: 20210717
  Serious: No
  Sender: FDA-Public Use
  Company Number: US-PFIZER INC-2020213820

PATIENT
  Age: 50 Year
  Sex: Female

DRUGS (3)
  1. INSULIN INJECTION [Concomitant]
     Active Substance: INSULIN NOS
     Dosage: UNK
  2. METHOTREXATE SODIUM. [Concomitant]
     Active Substance: METHOTREXATE SODIUM
     Dosage: UNK, WEEKLY(ONCE WEEKLY)
  3. XELJANZ XR [Suspect]
     Active Substance: TOFACITINIB CITRATE
     Indication: RHEUMATOID ARTHRITIS
     Dosage: 11 MG, 1X/DAY
     Route: 048
     Dates: start: 202004

REACTIONS (4)
  - Blood pressure systolic decreased [Unknown]
  - Chills [Unknown]
  - Laboratory test abnormal [Unknown]
  - Dizziness [Unknown]

NARRATIVE: CASE EVENT DATE: 2020
